FAERS Safety Report 11747013 (Version 2)
Quarter: 2015Q4

REPORT INFORMATION
  Report Type: Spontaneous
  Country: FR (occurrence: FR)
  Receive Date: 20151117
  Receipt Date: 20151119
  Transmission Date: 20160304
  Serious: Yes (Hospitalization)
  Sender: FDA-Public Use
  Company Number: FR-SA-2015SA175849

PATIENT
  Age: 65 Year
  Sex: Male

DRUGS (16)
  1. SMECTA [Concomitant]
     Active Substance: MONTMORILLONITE
     Route: 065
     Dates: start: 20151006, end: 20151009
  2. SERESTA [Concomitant]
     Active Substance: OXAZEPAM
     Route: 065
     Dates: end: 20151013
  3. ZAMUDOL [Suspect]
     Active Substance: TRAMADOL HYDROCHLORIDE
     Dosage: FORM:PROLONGED-RELEASE CAPSULE
     Route: 048
     Dates: start: 20151006, end: 20151006
  4. CUBICIN [Suspect]
     Active Substance: DAPTOMYCIN
     Dosage: FORM: POWDER FOR SOLUTION TO BE DILUTED FOR INFUSION
     Route: 042
     Dates: start: 20151006, end: 20151014
  5. CLAIRYG [Suspect]
     Active Substance: HUMAN IMMUNOGLOBULIN G
     Route: 042
     Dates: start: 20151014, end: 20151016
  6. BISOCE [Concomitant]
     Active Substance: BISOPROLOL
     Route: 065
     Dates: start: 20151006
  7. TAHOR [Concomitant]
     Active Substance: ATORVASTATIN CALCIUM
     Route: 065
     Dates: end: 20151013
  8. RIMACTAN [Concomitant]
     Active Substance: RIFAMPIN
     Route: 065
     Dates: start: 20151006
  9. DOLIPRANE [Suspect]
     Active Substance: ACETAMINOPHEN
     Dosage: TAKEN IF NEEDED
     Route: 048
     Dates: end: 20151015
  10. CLAIRYG [Suspect]
     Active Substance: HUMAN IMMUNOGLOBULIN G
     Route: 042
     Dates: start: 20151014, end: 20151016
  11. HUMALOG [Concomitant]
     Active Substance: INSULIN LISPRO
     Route: 065
     Dates: start: 20151006
  12. EPINITRIL [Concomitant]
     Active Substance: NITROGLYCERIN
     Route: 065
     Dates: end: 20151007
  13. GAVISCON [Concomitant]
     Active Substance: ALUMINUM HYDROXIDE\MAGNESIUM CARBONATE
     Route: 065
     Dates: end: 20151013
  14. PLAVIX [Suspect]
     Active Substance: CLOPIDOGREL BISULFATE
     Route: 048
     Dates: end: 20151013
  15. CLOXACILLIN [Suspect]
     Active Substance: CLOXACILLIN
     Dosage: FORM: POWDER FOR INJECTABLE SOLUTION
     Route: 042
     Dates: start: 20151014, end: 20151016
  16. KARDEGIC [Concomitant]
     Active Substance: ASPIRIN LYSINE
     Route: 065
     Dates: start: 20151013

REACTIONS (1)
  - Hepatocellular injury [Recovered/Resolved]

NARRATIVE: CASE EVENT DATE: 20151014
